FAERS Safety Report 4264982-3 (Version None)
Quarter: 2004Q1

REPORT INFORMATION
  Report Type: 
  Country: None (occurrence: None)
  Receive Date: 20040106
  Receipt Date: 20030826
  Transmission Date: 20041129
  Serious: Yes (Hospitalization)
  Sender: FDA-Public Use
  Company Number: WAES 0308FRA00033

PATIENT
  Age: 70 Year
  Sex: Female
  Weight: 60 kg

DRUGS (5)
  1. CHONDROITIN SULFATE SODIUM [Concomitant]
     Route: 048
     Dates: end: 20030822
  2. FLUVASTATIN SODIUM [Concomitant]
     Indication: HYPERCHOLESTEROLAEMIA
     Route: 048
     Dates: end: 20030822
  3. IRBESARTAN [Concomitant]
     Route: 048
     Dates: end: 20030822
  4. OMEPRAZOLE [Concomitant]
     Indication: HIATUS HERNIA
     Route: 048
  5. VIOXX [Suspect]
     Route: 048
     Dates: start: 20010101, end: 20030819

REACTIONS (2)
  - COLITIS ULCERATIVE [None]
  - PHLEBITIS [None]
